FAERS Safety Report 10440781 (Version 1)
Quarter: 2014Q3

REPORT INFORMATION
  Report Type: Spontaneous
  Country: US (occurrence: None)
  Receive Date: 20140905
  Receipt Date: 20140905
  Transmission Date: 20150326
  Serious: Yes (Disabling)
  Sender: FDA-Public Use
  Company Number: None

PATIENT
  Age: 54 Year
  Sex: Male
  Weight: 92.99 kg

DRUGS (1)
  1. XARELTO [Suspect]
     Active Substance: RIVAROXABAN
     Indication: ATRIAL FIBRILLATION
     Dosage: 1 PILL WITH DINNER ONCE DAILY, TAKEN BY MOUTH
     Route: 048
     Dates: start: 20140528, end: 20140716

REACTIONS (5)
  - Pain [None]
  - Myalgia [None]
  - Hypoaesthesia [None]
  - Arthralgia [None]
  - Rheumatoid arthritis [None]

NARRATIVE: CASE EVENT DATE: 20140604
